FAERS Safety Report 15720856 (Version 1)
Quarter: 2018Q4

REPORT INFORMATION
  Report Type: Report from Study
  Country: None (occurrence: US)
  Receive Date: 20181214
  Receipt Date: 20181214
  Transmission Date: 20190205
  Serious: Yes (Hospitalization, Other)
  Sender: FDA-Public Use
  Company Number: US-ABBVIE-18S-163-2587315-00

PATIENT
  Age: 83 Year
  Sex: Female

DRUGS (1)
  1. CREON [Suspect]
     Active Substance: PANCRELIPASE AMYLASE\PANCRELIPASE LIPASE\PANCRELIPASE PROTEASE
     Indication: PRODUCT USED FOR UNKNOWN INDICATION
     Route: 048

REACTIONS (7)
  - Anal incontinence [Unknown]
  - Gastric disorder [Unknown]
  - Hospitalisation [Unknown]
  - Malaise [Unknown]
  - Weight decreased [Unknown]
  - Diarrhoea [Unknown]
  - Pancreatic failure [Unknown]

NARRATIVE: CASE EVENT DATE: 201807
